FAERS Safety Report 15312766 (Version 2)
Quarter: 2018Q3

REPORT INFORMATION
  Report Type: Spontaneous
  Country: US (occurrence: US)
  Receive Date: 20180823
  Receipt Date: 20180921
  Transmission Date: 20181010
  Serious: No
  Sender: FDA-Public Use
  Company Number: US-BAYER-2018-156424

PATIENT
  Age: 17 Year
  Sex: Female

DRUGS (1)
  1. MIRENA [Suspect]
     Active Substance: LEVONORGESTREL
     Indication: MENORRHAGIA
     Dosage: 20 MCG/24HR, CONT
     Route: 015
     Dates: start: 20180813, end: 20180817

REACTIONS (7)
  - Procedural vomiting [Recovered/Resolved]
  - Medical device discomfort [Not Recovered/Not Resolved]
  - Syncope [Recovered/Resolved]
  - Medical device pain [Not Recovered/Not Resolved]
  - Device expulsion [Not Recovered/Not Resolved]
  - Procedural pain [Recovered/Resolved]
  - Intentional medical device removal by patient [None]

NARRATIVE: CASE EVENT DATE: 20180813
